FAERS Safety Report 10311806 (Version 3)
Quarter: 2014Q3

REPORT INFORMATION
  Report Type: Spontaneous
  Country: US (occurrence: US)
  Receive Date: 20140717
  Receipt Date: 20140731
  Transmission Date: 20150326
  Serious: Yes (Other)
  Sender: FDA-Public Use
  Company Number: US-ASTRAZENECA-2014SE50287

PATIENT
  Age: 67 Year
  Sex: Female
  Weight: 63 kg

DRUGS (28)
  1. FASLODEX [Suspect]
     Active Substance: FULVESTRANT
     Indication: NEOPLASM MALIGNANT
     Route: 030
     Dates: start: 20111011, end: 20120821
  2. IXEMPRA [Concomitant]
     Active Substance: IXABEPILONE
     Dates: start: 20120821
  3. EXEMESTANE. [Concomitant]
     Active Substance: EXEMESTANE
  4. TAXOTERE [Concomitant]
     Active Substance: DOCETAXEL
  5. IXEMPRA [Concomitant]
     Active Substance: IXABEPILONE
     Dates: start: 20120911
  6. IXABEPILONE [Concomitant]
     Active Substance: IXABEPILONE
     Dosage: 45 MG DAILY INTERMITTENT OVER 180 MINUTES FOR 1DAY IN RL 250 ML (6) AT THE RATE OF 83 ML/HR
     Route: 042
  7. ABRAXANE [Concomitant]
     Active Substance: PACLITAXEL
     Route: 042
     Dates: start: 20110222
  8. ALOXI [Concomitant]
     Active Substance: PALONOSETRON HYDROCHLORIDE
     Dosage: 0.25 MG, DAILY OVER 10 MINUTES FOR I DAY IN NS 50 ML (2) AT THE RATE OF 300 ML/HR
     Route: 042
  9. PALONOSETRON HCL [Concomitant]
     Active Substance: PALONOSETRON HYDROCHLORIDE
     Dosage: 0.2 MG, DAILY INTERMITTENT OVER 10 MINUTES FOR 1 DAY IN NS 50 ML (2) LIT THE RATE OF300 ML/HR
     Route: 042
  10. CYTOXAN [Concomitant]
     Active Substance: CYCLOPHOSPHAMIDE
  11. AMBIEN [Concomitant]
     Active Substance: ZOLPIDEM TARTRATE
     Dosage: 5 MG, AT BEDTIME PRN
     Route: 048
  12. FAMOTIDINE. [Concomitant]
     Active Substance: FAMOTIDINE
     Dosage: 20 MG, DAILY, INTERMITTENT OVER 15 MINUTES FOR I DAY ILL NS 50 ML(5) AT THE RATE OF200 ML/HR
     Route: 042
  13. AFINITOR [Concomitant]
     Active Substance: EVEROLIMUS
     Route: 048
  14. DIPHENHYDRAMINE HCL [Concomitant]
     Active Substance: DIPHENHYDRAMINE HYDROCHLORIDE
     Dosage: 25 MG, DAILY, INTERMITTENT OVER 15 MINUTES FOR I DAY ILL NS 50 ML(4)AT THE RATE OF200 ML/HR
     Route: 042
  15. LACTULOSE. [Concomitant]
     Active Substance: LACTULOSE
     Dosage: 15-30 ML, TWO TIMES A DAY, AS REQUIRED
     Route: 048
  16. NEULASTA [Concomitant]
     Active Substance: PEGFILGRASTIM
     Dosage: 6 MG, DAILY FOR 1 DAY
     Route: 058
  17. AROMASIN [Concomitant]
     Active Substance: EXEMESTANE
     Route: 048
     Dates: start: 20140624
  18. GABAPENTIN. [Concomitant]
     Active Substance: GABAPENTIN
     Route: 048
  19. ZOMETA [Concomitant]
     Active Substance: ZOLEDRONIC ACID
     Dates: start: 20120821
  20. DEXAMETHASONE SODIUM PHOSPHATE [Concomitant]
     Active Substance: DEXAMETHASONE SODIUM PHOSPHATE
     Dosage: 10 MG, DAILY INTERMITTENT OVER 10 MINUTES FOR 1 DAY IN NS 50 ML (3) AT THE RATE OF 300 ML/HR
     Route: 042
  21. GRANISETRON [Concomitant]
     Active Substance: GRANISETRON
     Dosage: 1 MG, DAILY, INTERMITTENT OVER 10 MINUTES FOR I DAY ILL NS 50 ML(1) AT THE RATE OF 300 ML/HR
     Route: 042
  22. PERCOCET [Concomitant]
     Active Substance: ACETAMINOPHEN\OXYCODONE HYDROCHLORIDE
     Dosage: 1 - 2 DOSES (OF 5-325 MG) TABLET ORAL Q 4 TO 6 HOURS PRN
     Route: 048
  23. XEMPRA [Suspect]
     Active Substance: OMEPRAZOLE
     Route: 065
     Dates: start: 20120821
  24. ARIMIDEX [Suspect]
     Active Substance: ANASTROZOLE
     Indication: BREAST CANCER FEMALE
     Route: 048
     Dates: start: 200901, end: 200911
  25. ZOMETA [Concomitant]
     Active Substance: ZOLEDRONIC ACID
     Dosage: 4 MG, DAILY OVER 30 MINUTES FOR 1 DAY IN NS 150 ML (1) AT THE RATE OF, 300 MLLHRMONTHLY
     Route: 042
     Dates: start: 20111011
  26. IXEMPRA [Concomitant]
     Active Substance: IXABEPILONE
     Dates: end: 20140429
  27. XELODA [Concomitant]
     Active Substance: CAPECITABINE
     Route: 048
     Dates: start: 20120911
  28. NEUPOGEN [Concomitant]
     Active Substance: FILGRASTIM

REACTIONS (4)
  - Malignant neoplasm progression [Not Recovered/Not Resolved]
  - Drug intolerance [Unknown]
  - Neuropathy peripheral [Recovered/Resolved]
  - Neutropenia [Unknown]

NARRATIVE: CASE EVENT DATE: 20120828
